FAERS Safety Report 4331616-9 (Version None)
Quarter: 2004Q2

REPORT INFORMATION
  Report Type: 
  Country: None (occurrence: None)
  Receive Date: 20040405
  Receipt Date: 20040324
  Transmission Date: 20050107
  Serious: Yes (Hospitalization)
  Sender: FDA-Public Use
  Company Number: CN-MERCK-0403CHN00019

PATIENT
  Age: 9 Day
  Sex: Male

DRUGS (7)
  1. AMBROXOL HYDROCHLORIDE [Concomitant]
     Indication: NEONATAL RESPIRATORY DISTRESS SYNDROME
     Route: 042
     Dates: start: 20040218, end: 20040229
  2. ASCORBIC ACID [Concomitant]
     Indication: NUTRITIONAL SUPPORT
     Route: 042
     Dates: start: 20040214, end: 20040301
  3. SULPERAZONE [Concomitant]
     Indication: LUNG INFECTION
     Route: 042
     Dates: start: 20040221, end: 20040223
  4. PRIMAXIN [Suspect]
     Indication: LUNG INFECTION
     Route: 042
     Dates: start: 20040223, end: 20040227
  5. FRUCTOSE-1,6-DIPHOSPHATE [Concomitant]
     Indication: NUTRITIONAL SUPPORT
     Route: 042
     Dates: start: 20040216, end: 20040229
  6. PHOSPHOLIPIDS (UNSPECIFIED) [Concomitant]
     Indication: NEONATAL RESPIRATORY DISTRESS SYNDROME
     Route: 048
     Dates: start: 20040214, end: 20040219
  7. THYMUS EXTRACT (AS DRUG) [Concomitant]
     Indication: NUTRITIONAL SUPPORT
     Route: 042
     Dates: start: 20040216, end: 20040229

REACTIONS (1)
  - HEART RATE INCREASED [None]
